FAERS Safety Report 19972688 (Version 1)
Quarter: 2021Q4

REPORT INFORMATION
  Report Type: Spontaneous
  Country: ES (occurrence: ES)
  Receive Date: 20211020
  Receipt Date: 20211020
  Transmission Date: 20220303
  Serious: Yes (Other)
  Sender: FDA-Public Use
  Company Number: ES-SA-SAC20211004001543

PATIENT
  Age: 69 Year
  Sex: Male
  Weight: 69 kg

DRUGS (3)
  1. REPAGLINIDE [Suspect]
     Active Substance: REPAGLINIDE
     Indication: Type 2 diabetes mellitus
     Dosage: 2 MILLIGRAM, TWO TIMES A DAY (2 MG, Q12H (1-1-0))
     Route: 048
  2. INSULIN GLARGINE [Suspect]
     Active Substance: INSULIN GLARGINE
     Indication: Type 2 diabetes mellitus
     Dosage: 12 INTERNATIONAL UNIT, ONCE A DAY(12 IU, QD)
     Route: 058
     Dates: start: 20210917
  3. JANUMET [Suspect]
     Active Substance: METFORMIN HYDROCHLORIDE\SITAGLIPTIN PHOSPHATE
     Indication: Type 2 diabetes mellitus
     Dosage: 1 DOSAGE FORM, TWO TIMES A DAY(1 DF, Q12H ( 1-0-1))
     Route: 048

REACTIONS (2)
  - Blood glucose fluctuation [Unknown]
  - Asthenia [Unknown]

NARRATIVE: CASE EVENT DATE: 20210901
